FAERS Safety Report 6267363-6 (Version None)
Quarter: 2009Q3

REPORT INFORMATION
  Report Type: 
  Country: None (occurrence: None)
  Receive Date: 20090714
  Receipt Date: 20090706
  Transmission Date: 20100115
  Serious: Yes (Other)
  Sender: FDA-Public Use
  Company Number: B0583653A

PATIENT
  Age: 27 Year
  Sex: Female

DRUGS (2)
  1. EPOPROSTENOL [Suspect]
     Route: 042
     Dates: start: 20040801
  2. TREPROSTINIL [Concomitant]
     Route: 058
     Dates: start: 20090301

REACTIONS (4)
  - ATRIAL SEPTAL DEFECT [None]
  - CATHETER SITE INFECTION [None]
  - PARADOXICAL EMBOLISM [None]
  - TRANSIENT ISCHAEMIC ATTACK [None]
